FAERS Safety Report 5082465-8 (Version None)
Quarter: 2006Q3

REPORT INFORMATION
  Report Type: 
  Country: None (occurrence: None)
  Receive Date: 20060817
  Receipt Date: 20060601
  Transmission Date: 20061208
  Serious: Yes (Hospitalization)
  Sender: FDA-Public Use
  Company Number: 2006UW10465

PATIENT
  Age: 29255 Day
  Sex: Female

DRUGS (8)
  1. LISINOPRIL [Suspect]
     Route: 048
  2. METOPROLOL TARTRATE [Suspect]
     Route: 048
  3. ASPIRIN [Concomitant]
     Route: 048
  4. ZOCOR [Concomitant]
     Route: 048
  5. ZETIA [Concomitant]
     Route: 048
  6. QUININE SULFATE [Concomitant]
     Route: 048
  7. GLUCOPHAGE [Concomitant]
  8. FERROUS SULFATE TAB [Concomitant]
     Route: 048

REACTIONS (8)
  - ABDOMINAL PAIN UPPER [None]
  - ATRIAL FIBRILLATION [None]
  - BLOOD PRESSURE INCREASED [None]
  - CHEST PAIN [None]
  - CORONARY ARTERY DISEASE [None]
  - DYSPNOEA [None]
  - NAUSEA [None]
  - VOMITING [None]
